FAERS Safety Report 5896167-9 (Version None)
Quarter: 2008Q3

REPORT INFORMATION
  Report Type: 
  Country: None (occurrence: None)
  Receive Date: 20080924
  Receipt Date: 20080501
  Transmission Date: 20090109
  Serious: Yes (Other)
  Sender: FDA-Public Use
  Company Number: US-ASTRAZENECA-2006UW27505

PATIENT
  Age: 50 Year
  Sex: Female
  Weight: 98.9 kg

DRUGS (2)
  1. SEROQUEL [Suspect]
     Indication: POST-TRAUMATIC STRESS DISORDER
     Dosage: 25 MG, 50 MG, 100 MG, 200 MG
     Route: 048
     Dates: start: 20011101, end: 20041101
  2. ABILIFY [Concomitant]

REACTIONS (2)
  - CARDIOMYOPATHY [None]
  - DIABETES MELLITUS [None]
